FAERS Safety Report 15213961 (Version 1)
Quarter: 2018Q3

REPORT INFORMATION
  Report Type: Spontaneous
  Country: US (occurrence: US)
  Receive Date: 20180730
  Receipt Date: 20180730
  Transmission Date: 20181010
  Serious: No
  Sender: FDA-Public Use
  Company Number: US-SA-2018SA203223

PATIENT
  Age: 44 Year
  Sex: Male

DRUGS (1)
  1. LEMTRADA [Suspect]
     Active Substance: ALEMTUZUMAB
     Route: 041
     Dates: start: 201801

REACTIONS (3)
  - Herpes simplex [Unknown]
  - Condition aggravated [Unknown]
  - Rash pruritic [Unknown]

NARRATIVE: CASE EVENT DATE: 201801
